FAERS Safety Report 18170188 (Version 2)
Quarter: 2021Q3

REPORT INFORMATION
  Report Type: Spontaneous
  Country: US (occurrence: US)
  Receive Date: 20200819
  Receipt Date: 20210902
  Transmission Date: 20211014
  Serious: Yes (Other)
  Sender: FDA-Public Use
  Company Number: US-SA-2020SA218264

PATIENT
  Age: 50 Year
  Sex: Female

DRUGS (1)
  1. ZANTAC [Suspect]
     Active Substance: RANITIDINE HYDROCHLORIDE
     Dosage: UNK, QD
     Dates: start: 201601, end: 201902

REACTIONS (1)
  - Colorectal cancer stage IV [Unknown]

NARRATIVE: CASE EVENT DATE: 20190201
